FAERS Safety Report 14453615 (Version 2)
Quarter: 2018Q1

REPORT INFORMATION
  Report Type: Spontaneous
  Country: DE (occurrence: DE)
  Receive Date: 20180129
  Receipt Date: 20180226
  Transmission Date: 20180509
  Serious: Yes (Other)
  Sender: FDA-Public Use
  Company Number: PHHY2017DE199880

PATIENT
  Age: 49 Year
  Sex: Female

DRUGS (6)
  1. PROGESTERONE. [Suspect]
     Active Substance: PROGESTERONE
     Indication: PREVENTION OF ENDOMETRIAL HYPERPLASIA
     Dosage: 100 MG, QD, (1 CAPSULE)
     Route: 048
     Dates: start: 201707
  2. ESTRADIOL. [Suspect]
     Active Substance: ESTRADIOL
     Indication: MENOPAUSAL DISORDER
     Dosage: 1 DF, QD, 1 PUFF DAILY
     Route: 062
     Dates: start: 201707
  3. PROGESTERONE. [Suspect]
     Active Substance: PROGESTERONE
     Indication: HORMONE REPLACEMENT THERAPY
     Dosage: UNK
     Route: 048
  4. GYNOKADIN [Suspect]
     Active Substance: ESTRADIOL
     Indication: MENOPAUSAL DISORDER
     Dosage: 1 DF, QD (1 DF 1/1 DAY (S) (1 PUFF DAILY)
     Route: 062
     Dates: start: 201707, end: 20171011
  5. ESTRADIOL. [Suspect]
     Active Substance: ESTRADIOL
     Indication: HORMONE REPLACEMENT THERAPY
     Route: 062
  6. UTROGESTAN [Suspect]
     Active Substance: PROGESTERONE
     Indication: PREVENTION OF ENDOMETRIAL HYPERPLASIA
     Dosage: 100 MG, QD (100 MG (1 CAPSULE), DAILY)
     Route: 048
     Dates: start: 201707, end: 20171011

REACTIONS (10)
  - Fatigue [Recovered/Resolved]
  - Limb discomfort [Recovered/Resolved]
  - Dizziness [Recovered/Resolved]
  - Cough [Recovered/Resolved]
  - Asthenia [Recovered/Resolved]
  - Alopecia [Recovered/Resolved]
  - Postmenopausal haemorrhage [Recovered/Resolved]
  - Head discomfort [Recovered/Resolved]
  - Acute sinusitis [Recovered/Resolved]
  - Oral herpes [Recovered/Resolved]

NARRATIVE: CASE EVENT DATE: 201707
